FAERS Safety Report 9271884 (Version 2)
Quarter: 2013Q2

REPORT INFORMATION
  Report Type: Spontaneous
  Country: US (occurrence: US)
  Receive Date: 20130506
  Receipt Date: 20130611
  Transmission Date: 20140414
  Serious: Yes (Other)
  Sender: FDA-Public Use
  Company Number: US-AMGEN-USASP2013030517

PATIENT
  Age: 77 Year
  Sex: Female

DRUGS (7)
  1. PROLIA [Suspect]
     Indication: OSTEOPOROSIS POSTMENOPAUSAL
     Dosage: UNK UNK, Q6MO
     Dates: start: 2011
  2. SINGULAIR [Concomitant]
  3. CRESTOR [Concomitant]
  4. ALLEGRA [Concomitant]
  5. ADVAIR [Concomitant]
  6. FLUTICASONE [Concomitant]
  7. DEXILANT [Concomitant]

REACTIONS (6)
  - Gallbladder disorder [Unknown]
  - Rib fracture [Unknown]
  - Post herpetic neuralgia [Unknown]
  - Pain [Unknown]
  - Herpes zoster [Unknown]
  - Nerve injury [Unknown]
